FAERS Safety Report 8610681-4 (Version None)
Quarter: 2012Q3

REPORT INFORMATION
  Report Type: 
  Country: None (occurrence: None)
  Receive Date: 20120808
  Receipt Date: 20120723
  Transmission Date: 20120928
  Serious: Yes (Other)
  Sender: FDA-Public Use
  Company Number: 2011MA004503

PATIENT
  Sex: Female
  Weight: 120.2032 kg

DRUGS (1)
  1. METOCLOPRAMIDE [Suspect]
     Dates: start: 20080601, end: 20101001

REACTIONS (8)
  - TARDIVE DYSKINESIA [None]
  - EXTRAPYRAMIDAL DISORDER [None]
  - INJURY [None]
  - CHOREA [None]
  - DYSKINESIA [None]
  - ECONOMIC PROBLEM [None]
  - EMOTIONAL DISORDER [None]
  - TREMOR [None]
